FAERS Safety Report 10245038 (Version 1)
Quarter: 2014Q2

REPORT INFORMATION
  Report Type: Spontaneous
  Country: US (occurrence: US)
  Receive Date: 20140618
  Receipt Date: 20140618
  Transmission Date: 20141212
  Serious: No
  Sender: FDA-Public Use
  Company Number: US-GALDERMA-US14001362

PATIENT
  Age: 76 Year
  Sex: Female

DRUGS (10)
  1. MIRVASO (BRIMONIDINE) TOPICAL GEL, 0.33% [Suspect]
     Indication: ROSACEA
     Dosage: 0.33%
     Route: 061
     Dates: start: 20140228
  2. VYTORIN [Concomitant]
     Indication: HYPERCHOLESTEROLAEMIA
     Route: 048
  3. SYNTHROID [Concomitant]
     Indication: THYROID DISORDER
     Dosage: 0.088 MG
     Route: 048
  4. NORVASC [Concomitant]
     Indication: HYPERTENSION
     Route: 048
  5. HYDROCHLOROTHIAZIDE [Concomitant]
     Indication: DIURETIC THERAPY
     Dosage: 25 MG
     Route: 048
  6. HUMALOG INSULIN [Concomitant]
     Indication: DIABETES MELLITUS
     Dosage: 70 UNITS
     Route: 058
  7. SWEDISH EGG WHITE SOAP [Concomitant]
     Indication: THERAPEUTIC SKIN CARE TOPICAL
     Route: 061
  8. ESTEE LAUDER CREAM CLEANSER [Concomitant]
     Indication: THERAPEUTIC SKIN CARE TOPICAL
     Route: 061
  9. ESTEE LAUDER SKIN CREAMS [Concomitant]
     Route: 061
     Dates: start: 2012
  10. ESTEE LAUDER MOISTURIZERS [Concomitant]
     Route: 061
     Dates: start: 2012

REACTIONS (6)
  - Feeling hot [Not Recovered/Not Resolved]
  - Flushing [Not Recovered/Not Resolved]
  - Rosacea [Not Recovered/Not Resolved]
  - Erythema [Not Recovered/Not Resolved]
  - Drug ineffective for unapproved indication [Not Recovered/Not Resolved]
  - Off label use [Not Recovered/Not Resolved]
